FAERS Safety Report 23497222 (Version 1)
Quarter: 2024Q1

REPORT INFORMATION
  Report Type: Spontaneous
  Country: US (occurrence: None)
  Receive Date: 20240207
  Receipt Date: 20240207
  Transmission Date: 20240410
  Serious: No
  Sender: FDA-Public Use
  Company Number: US-ROCHE-3292523

PATIENT
  Sex: Male
  Weight: 73 kg

DRUGS (2)
  1. XOLAIR [Suspect]
     Active Substance: OMALIZUMAB
     Indication: Urticaria
     Dosage: VIAL STRENGTH 150 MG
     Route: 058
     Dates: start: 202301
  2. XOLAIR [Suspect]
     Active Substance: OMALIZUMAB
     Indication: Idiopathic urticaria

REACTIONS (3)
  - Anxiety [Unknown]
  - Fatigue [Unknown]
  - Depression [Unknown]
